FAERS Safety Report 6252589-8 (Version None)
Quarter: 2009Q3

REPORT INFORMATION
  Report Type: 
  Country: None (occurrence: None)
  Receive Date: 20090701
  Receipt Date: 20090622
  Transmission Date: 20100115
  Serious: Yes (Hospitalization)
  Sender: FDA-Public Use
  Company Number: US-ELI_LILLY_AND_COMPANY-US200906005094

PATIENT
  Sex: Female

DRUGS (1)
  1. FORTEO [Suspect]

REACTIONS (5)
  - ATRIAL FIBRILLATION [None]
  - FRUSTRATION [None]
  - HOSPITALISATION [None]
  - INTESTINAL OBSTRUCTION [None]
  - VOMITING [None]
